FAERS Safety Report 6595317-9 (Version None)
Quarter: 2010Q1

REPORT INFORMATION
  Report Type: 
  Country: None (occurrence: None)
  Receive Date: 20100219
  Receipt Date: 20100219
  Transmission Date: 20100710
  Serious: Yes (Disabling)
  Sender: FDA-Public Use
  Company Number: None

PATIENT
  Age: 80 Year
  Sex: Female
  Weight: 44.4525 kg

DRUGS (4)
  1. METHYLPREDNISOLONE [Suspect]
     Indication: COUGH
     Dosage: 6 PILLS 1ST DAY, AND THEN FEWE EACH DAY FOR 6 DAY; TOOK 2 DOSES
     Dates: start: 20091116, end: 20091121
  2. METHYLPREDNISOLONE [Suspect]
     Indication: EAR PAIN
     Dosage: 6 PILLS 1ST DAY, AND THEN FEWE EACH DAY FOR 6 DAY; TOOK 2 DOSES
     Dates: start: 20091116, end: 20091121
  3. METHYLPREDNISOLONE [Suspect]
     Indication: COUGH
     Dosage: 6 PILLS 1ST DAY, AND THEN FEWE EACH DAY FOR 6 DAY; TOOK 2 DOSES
     Dates: start: 20091203, end: 20091208
  4. METHYLPREDNISOLONE [Suspect]
     Indication: EAR PAIN
     Dosage: 6 PILLS 1ST DAY, AND THEN FEWE EACH DAY FOR 6 DAY; TOOK 2 DOSES
     Dates: start: 20091203, end: 20091208

REACTIONS (6)
  - HYPERHIDROSIS [None]
  - INTERNATIONAL NORMALISED RATIO INCREASED [None]
  - MUSCULOSKELETAL STIFFNESS [None]
  - PAIN IN EXTREMITY [None]
  - RED BLOOD CELL SEDIMENTATION RATE INCREASED [None]
  - WEIGHT DECREASED [None]
